FAERS Safety Report 8136771-0 (Version None)
Quarter: 2012Q1

REPORT INFORMATION
  Report Type: 
  Country: None (occurrence: None)
  Receive Date: 20120214
  Receipt Date: 20120210
  Transmission Date: 20120608
  Serious: Yes (Disabling, Other)
  Sender: FDA-Public Use
  Company Number: US-PFIZER INC-2012026671

PATIENT
  Sex: Female
  Weight: 77.098 kg

DRUGS (8)
  1. GEODON [Suspect]
     Indication: DEPRESSION
     Dosage: 80 MG, 2X/DAY
     Route: 048
     Dates: start: 20100101, end: 20111001
  2. PRISTIQ [Suspect]
     Indication: DEPRESSION
     Dosage: UNK, 1X/DAY
     Route: 048
     Dates: start: 20100101, end: 20111001
  3. LYRICA [Suspect]
     Indication: PAIN
     Dosage: UNK, 1X/DAY
     Route: 048
     Dates: start: 20111001, end: 20111001
  4. LAMOTRIGINE [Concomitant]
     Indication: DEPRESSION
     Dosage: UNK
  5. PRISTIQ [Suspect]
     Dosage: UNK
  6. GEODON [Suspect]
     Dosage: UNK
  7. LYRICA [Suspect]
     Indication: FIBROMYALGIA
     Dosage: UNK
  8. SYNTHROID [Concomitant]
     Indication: HYPOTHYROIDISM
     Dosage: UNK

REACTIONS (13)
  - FALL [None]
  - SUICIDAL IDEATION [None]
  - INJURY [None]
  - DYSKINESIA [None]
  - BACK DISORDER [None]
  - PAIN [None]
  - HYPERTHYROIDISM [None]
  - OROPHARYNGEAL PAIN [None]
  - MALAISE [None]
  - MUSCULOSKELETAL DISCOMFORT [None]
  - DEPRESSION [None]
  - ADVERSE EVENT [None]
  - MUSCLE TWITCHING [None]
